FAERS Safety Report 7871516-0 (Version None)
Quarter: 2011Q4

REPORT INFORMATION
  Report Type: 
  Country: None (occurrence: None)
  Receive Date: 20111029
  Receipt Date: 20110303
  Transmission Date: 20120403
  Serious: No
  Sender: FDA-Public Use
  Company Number: US-AMGEN-USASP2011012126

PATIENT
  Age: 52 Year
  Sex: Female
  Weight: 68.934 kg

DRUGS (1)
  1. ENBREL [Suspect]
     Indication: RHEUMATOID ARTHRITIS
     Dosage: 50 MG, QWK

REACTIONS (6)
  - INJECTION SITE HAEMORRHAGE [None]
  - LIMB INJURY [None]
  - WHEEZING [None]
  - OEDEMA PERIPHERAL [None]
  - SINUS DISORDER [None]
  - LOCALISED INFECTION [None]
